FAERS Safety Report 6919182-2 (Version None)
Quarter: 2010Q3

REPORT INFORMATION
  Report Type: 
  Country: None (occurrence: None)
  Receive Date: 20100811
  Receipt Date: 20100803
  Transmission Date: 20110219
  Serious: Yes (Hospitalization)
  Sender: FDA-Public Use
  Company Number: JP-PFIZER INC-2008152389

PATIENT
  Age: 54 Year
  Sex: Male

DRUGS (11)
  1. LIPITOR [Suspect]
     Indication: HYPERLIPIDAEMIA
     Dosage: 10 MG, 1X/DAY
     Route: 048
     Dates: start: 20081009, end: 20081128
  2. GASTER OD [Suspect]
     Dosage: 20 MG, 1X/DAY
     Route: 048
     Dates: start: 20081009, end: 20081128
  3. MICARDIS [Suspect]
     Indication: HYPERTENSION
     Dosage: 40 MG, 1X/DAY
     Route: 048
     Dates: start: 20081009, end: 20081128
  4. ASPIRIN [Suspect]
     Dosage: 100 MG, 1X/DAY
     Route: 048
     Dates: start: 20081009, end: 20081128
  5. LASIX [Suspect]
     Dosage: 20 MG, 1X/DAY
     Route: 048
     Dates: start: 20081009, end: 20081128
  6. ALDACTONE [Suspect]
     Dosage: 25 MG, 1X/DAY
     Route: 048
     Dates: start: 20081009, end: 20081128
  7. HERBESSER ^DELTA^ [Suspect]
     Dosage: 100 MG, 1X/DAY
     Route: 048
     Dates: start: 20081009, end: 20081128
  8. ITOROL [Suspect]
     Dosage: 40 MG, 1X/DAY
     Route: 048
     Dates: start: 20081009, end: 20081128
  9. MAGNESIUM OXIDE [Suspect]
     Dosage: 750 MG, 1X/DAY
     Route: 048
     Dates: start: 20081009, end: 20081128
  10. WARFARIN [Concomitant]
     Dosage: 4 MG, 1X/DAY
     Route: 048
     Dates: start: 20081009
  11. DEPAS [Concomitant]
     Dosage: 1 MG, 1X/DAY
     Route: 048
     Dates: start: 20081009

REACTIONS (1)
  - LIVER DISORDER [None]
